FAERS Safety Report 10415755 (Version 1)
Quarter: 2014Q3

REPORT INFORMATION
  Report Type: Spontaneous
  Country: None (occurrence: CA)
  Receive Date: 20140828
  Receipt Date: 20140828
  Transmission Date: 20150326
  Serious: Yes (Life-Threatening)
  Sender: FDA-Public Use
  Company Number: 2014SP002620

PATIENT
  Age: 66 Year
  Sex: Male

DRUGS (14)
  1. VALPROIC ACID. [Concomitant]
     Active Substance: VALPROIC ACID
  2. ATORVASTATIN [Concomitant]
     Active Substance: ATORVASTATIN
  3. HUMALOG [Concomitant]
     Active Substance: INSULIN LISPRO
  4. CHOLECALCIFEROL [Concomitant]
     Active Substance: CHOLECALCIFEROL
  5. ACETAMINOPHEN. [Concomitant]
     Active Substance: ACETAMINOPHEN
  6. IPRATROPIUM [Concomitant]
     Active Substance: IPRATROPIUM
  7. PIPERACILLIN/TAZOBACTAM [Concomitant]
     Active Substance: PIPERACILLIN SODIUM\TAZOBACTAM SODIUM
  8. RAMIPRIL. [Concomitant]
     Active Substance: RAMIPRIL
  9. SALBUTAMOL [Concomitant]
     Active Substance: ALBUTEROL
  10. LATUDA [Suspect]
     Active Substance: LURASIDONE HYDROCHLORIDE
     Route: 048
  11. CYANOCOBALAMIN. [Concomitant]
     Active Substance: CYANOCOBALAMIN
  12. LANTUS [Concomitant]
     Active Substance: INSULIN GLARGINE
  13. XARELTO [Concomitant]
     Active Substance: RIVAROXABAN
  14. LANSOPRAZOLE. [Concomitant]
     Active Substance: LANSOPRAZOLE

REACTIONS (4)
  - Neutrophil count decreased [Recovered/Resolved]
  - Platelet count increased [Recovered/Resolved]
  - Thrombocytopenia [Recovered/Resolved]
  - Haemoglobin decreased [Recovered/Resolved]
